FAERS Safety Report 8017337-X (Version None)
Quarter: 2012Q1

REPORT INFORMATION
  Report Type: 
  Country: None (occurrence: None)
  Receive Date: 20120102
  Receipt Date: 20111230
  Transmission Date: 20120608
  Serious: Yes (Hospitalization, Other)
  Sender: FDA-Public Use
  Company Number: US-ROCHE-1015843

PATIENT
  Sex: Female

DRUGS (1)
  1. ZELBORAF [Suspect]
     Indication: MALIGNANT MELANOMA
     Route: 048
     Dates: start: 20110805

REACTIONS (11)
  - EYE SWELLING [None]
  - PAIN [None]
  - EYE PAIN [None]
  - HYPOAESTHESIA EYE [None]
  - BURNING SENSATION [None]
  - SKIN ULCER [None]
  - BLOOD SODIUM DECREASED [None]
  - SWELLING FACE [None]
  - HERPES ZOSTER [None]
  - BLISTER [None]
  - HEADACHE [None]
